FAERS Safety Report 10843539 (Version 1)
Quarter: 2015Q1

REPORT INFORMATION
  Report Type: Other
  Country: GB (occurrence: GB)
  Receive Date: 20150220
  Receipt Date: 20150220
  Transmission Date: 20150721
  Serious: Yes (Death, Other)
  Sender: FDA-Public Use
  Company Number: GB-SUN PHARMACEUTICAL INDUSTRIES LTD-2015SUN00427

PATIENT

DRUGS (8)
  1. OXALIPLATIN. [Suspect]
     Active Substance: OXALIPLATIN
     Indication: RECTAL ADENOCARCINOMA
     Route: 042
     Dates: start: 20140414, end: 201409
  2. RISPERIDONE. [Concomitant]
     Active Substance: RISPERIDONE
  3. CANDESARTAN [Concomitant]
     Active Substance: CANDESARTAN
  4. CLOPIDOGREL [Concomitant]
     Active Substance: CLOPIDOGREL BISULFATE
  5. BISOPROLOL [Concomitant]
     Active Substance: BISOPROLOL
  6. CAPECITABINE. [Suspect]
     Active Substance: CAPECITABINE
     Indication: RECTAL ADENOCARCINOMA
     Route: 042
     Dates: start: 20140414, end: 201409
  7. OMEPRAZOLE. [Concomitant]
     Active Substance: OMEPRAZOLE
  8. SIMVASTATIN. [Concomitant]
     Active Substance: SIMVASTATIN

REACTIONS (6)
  - Pneumothorax [Unknown]
  - Interstitial lung disease [Not Recovered/Not Resolved]
  - Chest pain [Unknown]
  - Respiratory failure [Fatal]
  - Platelet count decreased [Unknown]
  - Change of bowel habit [Unknown]

NARRATIVE: CASE EVENT DATE: 201409
